FAERS Safety Report 10020961 (Version 1)
Quarter: 2014Q1

REPORT INFORMATION
  Report Type: Report from Study
  Country: CA (occurrence: CA)
  Receive Date: 20140319
  Receipt Date: 20140319
  Transmission Date: 20141002
  Serious: Yes (Other)
  Sender: FDA-Public Use
  Company Number: CA-JNJFOC-20140308486

PATIENT
  Age: 33 Year
  Sex: Female
  Weight: 48 kg

DRUGS (4)
  1. REMICADE [Suspect]
     Indication: CROHN^S DISEASE
     Route: 042
     Dates: start: 2008
  2. CIPRALEX [Concomitant]
     Route: 048
  3. ATIVAN [Concomitant]
     Route: 065
  4. BIRTH CONTROL PILL [Concomitant]
     Route: 065

REACTIONS (2)
  - Panic attack [Not Recovered/Not Resolved]
  - Anxiety [Not Recovered/Not Resolved]
